FAERS Safety Report 17561012 (Version 4)
Quarter: 2021Q2

REPORT INFORMATION
  Report Type: Spontaneous
  Country: US (occurrence: US)
  Receive Date: 20200319
  Receipt Date: 20210415
  Transmission Date: 20210716
  Serious: Yes (Other)
  Sender: FDA-Public Use
  Company Number: US-PFIZER INC-2020119049

PATIENT
  Age: 46 Year
  Sex: Male

DRUGS (1)
  1. LYRICA [Suspect]
     Active Substance: PREGABALIN
     Indication: NEUROPATHY PERIPHERAL
     Dosage: 100 MG, 3X/DAY
     Route: 048

REACTIONS (5)
  - Malignant melanoma [Unknown]
  - Encephalopathy [Recovered/Resolved]
  - Metastases to central nervous system [Unknown]
  - Asthenia [Not Recovered/Not Resolved]
  - Off label use [Unknown]
